FAERS Safety Report 20319714 (Version 1)
Quarter: 2022Q1

REPORT INFORMATION
  Report Type: Spontaneous
  Country: NL (occurrence: NL)
  Receive Date: 20220110
  Receipt Date: 20220110
  Transmission Date: 20220423
  Serious: Yes (Other)
  Sender: FDA-Public Use
  Company Number: NL-LRB-00741153

PATIENT
  Sex: Female
  Weight: 76 kg

DRUGS (2)
  1. CITALOPRAM HYDROBROMIDE [Suspect]
     Active Substance: CITALOPRAM HYDROBROMIDE
     Indication: Depression
     Dosage: 10 MILLIGRAM, TWO TIMES A DAY (2 X 1 PIECE)
     Route: 065
     Dates: start: 202109
  2. OXAZEPAM [Concomitant]
     Active Substance: OXAZEPAM
     Indication: Product used for unknown indication
     Dosage: UNK (TABLET, 5 MG (MILLIGRAM))
     Route: 065

REACTIONS (1)
  - Suicidal ideation [Not Recovered/Not Resolved]
